FAERS Safety Report 19909348 (Version 1)
Quarter: 2021Q4

REPORT INFORMATION
  Report Type: Spontaneous
  Country: KW (occurrence: KW)
  Receive Date: 20211001
  Receipt Date: 20211001
  Transmission Date: 20220303
  Serious: Yes (Other)
  Sender: FDA-Public Use
  Company Number: KW-BIOMARINAP-KW-2021-138717

PATIENT
  Age: 26 Year
  Sex: Male

DRUGS (4)
  1. PALYNZIQ [Suspect]
     Active Substance: PEGVALIASE-PQPZ
     Indication: Phenylketonuria
     Dosage: 20 MILLIGRAM, QD
     Route: 058
  2. ACETAMINOPHEN [Concomitant]
     Active Substance: ACETAMINOPHEN
     Indication: Premedication
     Dosage: 1 GRAM, SINGLE
  3. Aerius [Concomitant]
     Indication: Premedication
     Dosage: 5 MILLIGRAM, SINGLE
  4. NIZATIDINE [Concomitant]
     Active Substance: NIZATIDINE
     Indication: Premedication
     Dosage: 300 MILLIGRAM, SINGLE

REACTIONS (2)
  - Hepatic enzyme increased [Not Recovered/Not Resolved]
  - Blood bilirubin increased [Not Recovered/Not Resolved]

NARRATIVE: CASE EVENT DATE: 20210914
